FAERS Safety Report 8303493 (Version 3)
Quarter: 2013Q3

REPORT INFORMATION
  Report Type: Report from Study
  Country: US (occurrence: US)
  Receive Date: 20111220
  Receipt Date: 20130917
  Transmission Date: 20140515
  Serious: Yes (Death, Hospitalization, Other)
  Sender: FDA-Public Use
  Company Number: PHEH2011US008614

PATIENT
  Age: 46 Year
  Sex: Female

DRUGS (1)
  1. NEORAL [Suspect]
     Indication: RENAL AND PANCREAS TRANSPLANT
     Dosage: 25 MG, BID
     Route: 048
     Dates: start: 20110711

REACTIONS (10)
  - Death [Fatal]
  - Urinary bladder rupture [Unknown]
  - Wound [Unknown]
  - Renal failure acute [Unknown]
  - Renal impairment [Unknown]
  - Diarrhoea [Unknown]
  - Abdominal discomfort [Recovered/Resolved]
  - Flatulence [Unknown]
  - Dehydration [Unknown]
  - Quality of life decreased [Unknown]
